FAERS Safety Report 4677723-2 (Version None)
Quarter: 2005Q2

REPORT INFORMATION
  Report Type: 
  Country: None (occurrence: None)
  Receive Date: 20050531
  Receipt Date: 20050525
  Transmission Date: 20051028
  Serious: Yes (Death, Other)
  Sender: FDA-Public Use
  Company Number: PHBS2005JP07427

PATIENT
  Age: 32 Year
  Sex: Female

DRUGS (3)
  1. CYCLOSPORINE [Suspect]
     Indication: BONE MARROW TRANSPLANT
     Route: 065
  2. RADIOTHERAPY [Suspect]
  3. CHEMOTHERAPEUTICS,OTHER [Suspect]

REACTIONS (4)
  - ACUTE RESPIRATORY DISTRESS SYNDROME [None]
  - RED BLOOD CELL SCHISTOCYTES PRESENT [None]
  - THROMBOTIC MICROANGIOPATHY [None]
  - VENOOCCLUSIVE DISEASE [None]
